FAERS Safety Report 9402587 (Version 1)
Quarter: 2013Q3

REPORT INFORMATION
  Report Type: Spontaneous
  Country: US (occurrence: US)
  Receive Date: 20130716
  Receipt Date: 20130716
  Transmission Date: 20140515
  Serious: No
  Sender: FDA-Public Use
  Company Number: US-009507513-1306USA008667

PATIENT
  Age: 63 Year
  Sex: Male

DRUGS (4)
  1. VICTRELIS [Suspect]
     Indication: HEPATITIS C
     Dosage: 200 MG CAPSULES,4 CAPSULES TID
     Route: 048
     Dates: start: 20130418
  2. PEGASYS [Suspect]
  3. RIBAPAK [Suspect]
  4. FLOMAX (TAMSULOSIN HYDROCHLORIDE) [Concomitant]

REACTIONS (7)
  - Mental impairment [Unknown]
  - Hypovitaminosis [Unknown]
  - Blood test abnormal [Unknown]
  - Feeling hot [Unknown]
  - Adverse event [Unknown]
  - Asthenia [Unknown]
  - Fatigue [Unknown]
